FAERS Safety Report 20119446 (Version 1)
Quarter: 2021Q4

REPORT INFORMATION
  Report Type: Spontaneous
  Country: CN (occurrence: CN)
  Receive Date: 20211126
  Receipt Date: 20211126
  Transmission Date: 20220304
  Serious: Yes (Other)
  Sender: FDA-Public Use
  Company Number: CN-BAXTER-2021BAX037464

PATIENT
  Age: 53 Year
  Sex: Female

DRUGS (2)
  1. MANNITOL [Suspect]
     Active Substance: MANNITOL
     Indication: Sciatica
     Route: 041
     Dates: start: 20211003, end: 20211003
  2. MANNITOL [Suspect]
     Active Substance: MANNITOL
     Indication: Back pain
     Dosage: DRUG REINTRODUCED
     Route: 041

REACTIONS (1)
  - Rash pruritic [Recovering/Resolving]

NARRATIVE: CASE EVENT DATE: 20211003
